FAERS Safety Report 4704244-0 (Version None)
Quarter: 2005Q2

REPORT INFORMATION
  Report Type: 
  Country: None (occurrence: None)
  Receive Date: 20050627
  Receipt Date: 20040927
  Transmission Date: 20051028
  Serious: Yes (Other)
  Sender: FDA-Public Use
  Company Number: US-JNJFOC-20040902741

PATIENT
  Age: 72 Year
  Sex: Female
  Weight: 59 kg

DRUGS (12)
  1. DURAGESIC-100 [Suspect]
     Indication: CANCER PAIN
     Dosage: 25 UG/HR, TRANSDERMAL
     Route: 062
     Dates: start: 20040902, end: 20040902
  2. COMPAZINE (PROCHLORPERZAINE EDISYLATE) [Concomitant]
  3. PHENERGAN [Concomitant]
  4. DILAUDID [Concomitant]
  5. TRAZODONE (TRAZODONE) [Concomitant]
  6. OXYCODONE (OXYCODONE) [Concomitant]
  7. ATIVAN [Concomitant]
  8. ENOXAPARIN SODIUM [Concomitant]
  9. LORAZEPAM [Concomitant]
  10. PAROXETINE HCL [Concomitant]
  11. POTASSIUM CHLORIDE [Concomitant]
  12. TPN (TPN) [Concomitant]

REACTIONS (4)
  - BRADYPNOEA [None]
  - DEPRESSED LEVEL OF CONSCIOUSNESS [None]
  - DROOLING [None]
  - OXYGEN SATURATION DECREASED [None]
